FAERS Safety Report 12795658 (Version 1)
Quarter: 2016Q3

REPORT INFORMATION
  Report Type: Report from Study
  Country: JP (occurrence: JP)
  Receive Date: 20160929
  Receipt Date: 20160929
  Transmission Date: 20161109
  Serious: Yes (Hospitalization, Other)
  Sender: FDA-Public Use
  Company Number: JP-DSJP-DSJ-2016-131540AA

PATIENT

DRUGS (19)
  1. SAMSCA [Suspect]
     Active Substance: TOLVAPTAN
     Indication: CONGENITAL CYSTIC KIDNEY DISEASE
     Dosage: 60MG/DAY
     Route: 048
     Dates: start: 20150113
  2. SAMSCA [Suspect]
     Active Substance: TOLVAPTAN
     Dosage: 45 MG, QD, QAM
     Route: 048
     Dates: start: 20150223
  3. SHAKUYAKUKANZOTO [Concomitant]
     Active Substance: HERBALS
     Dosage: UNK
     Route: 065
  4. SENNOSIDE A+B [Concomitant]
     Active Substance: SENNOSIDES A AND B
     Dosage: UNK
     Route: 065
     Dates: start: 20150303
  5. OLMETEC [Suspect]
     Active Substance: OLMESARTAN MEDOXOMIL
     Indication: PRODUCT USED FOR UNKNOWN INDICATION
     Dosage: 20MG/DAY
     Route: 048
  6. URIADEC [Concomitant]
     Active Substance: TOPIROXOSTAT
     Dosage: UNK
     Route: 065
     Dates: end: 20150227
  7. BONOTEO [Concomitant]
     Active Substance: MINODRONIC ACID
     Dosage: UNK
     Route: 065
  8. NATRIX [Suspect]
     Active Substance: INDAPAMIDE
     Indication: PRODUCT USED FOR UNKNOWN INDICATION
     Dosage: 0.5MG/DAY
     Route: 048
     Dates: end: 20150227
  9. ESOMEPRAZOLE MAGNESIUM. [Concomitant]
     Active Substance: ESOMEPRAZOLE MAGNESIUM
     Dosage: UNK
     Route: 065
  10. FAMOTIDINE. [Concomitant]
     Active Substance: FAMOTIDINE
     Dosage: UNK
     Route: 065
  11. LOXONIN TABLETS 60MG [Concomitant]
     Active Substance: LOXOPROFEN
     Dosage: UNK
     Route: 065
  12. SENNOSIDE A+B [Concomitant]
     Active Substance: SENNOSIDES A AND B
     Dosage: UNK
     Route: 065
  13. ATELEC [Concomitant]
     Active Substance: CILNIDIPINE
     Dosage: UNK
     Route: 065
  14. YODEL [Concomitant]
     Active Substance: SENNA LEAF
     Dosage: UNK
     Route: 065
  15. MERISLON [Concomitant]
     Active Substance: BETAHISTINE MESILATE
     Dosage: UNK
     Route: 065
  16. SAMSCA [Suspect]
     Active Substance: TOLVAPTAN
     Dosage: 15 MG, QD, IN THE EVENING
     Route: 048
     Dates: start: 20150223
  17. CERCINE [Concomitant]
     Active Substance: DIAZEPAM
     Dosage: UNK
     Route: 065
  18. FEBURIC [Concomitant]
     Active Substance: FEBUXOSTAT
     Dosage: UNK
     Route: 065
     Dates: start: 20150227
  19. CALONAL [Concomitant]
     Active Substance: ACETAMINOPHEN
     Dosage: UNK
     Route: 065
     Dates: start: 20150224, end: 20150224

REACTIONS (6)
  - Hyponatraemia [Recovered/Resolved]
  - Hyponatraemia [Recovering/Resolving]
  - Hepatic enzyme increased [Recovered/Resolved]
  - Nasopharyngitis [Recovered/Resolved]
  - Pyrexia [Unknown]
  - Hyperkalaemia [Recovered/Resolved]

NARRATIVE: CASE EVENT DATE: 20150225
